FAERS Safety Report 13887226 (Version 1)
Quarter: 2017Q3

REPORT INFORMATION
  Report Type: Spontaneous
  Country: DE (occurrence: DE)
  Receive Date: 20170821
  Receipt Date: 20170821
  Transmission Date: 20171127
  Serious: Yes (Hospitalization)
  Sender: FDA-Public Use
  Company Number: DE-TEVA-797804GER

PATIENT
  Sex: Male
  Weight: 70 kg

DRUGS (2)
  1. DUORESP SPIROMAX 160 MIKROGRAMM/4,5 MIKROGRAMM PULVER ZUR INHALATION [Concomitant]
     Dosage: 1 DF CONTAINS: 160 MICROGRAM BUDESONIDE AND 4.5 MICROGRAM FORMOTEROL
     Route: 055
     Dates: start: 20141218
  2. CINQAERO [Suspect]
     Active Substance: RESLIZUMAB
     Indication: ASTHMA
     Dosage: 2 DOSAGE FORMS DAILY;
     Route: 042
     Dates: start: 20170619

REACTIONS (3)
  - Dyspnoea [Recovered/Resolved]
  - Fear of death [Recovered/Resolved]
  - Hyperhidrosis [Recovered/Resolved]
